FAERS Safety Report 7875828-6 (Version None)
Quarter: 2011Q4

REPORT INFORMATION
  Report Type: 
  Country: None (occurrence: None)
  Receive Date: 20111031
  Receipt Date: 20111018
  Transmission Date: 20120403
  Serious: Yes (Other)
  Sender: FDA-Public Use
  Company Number: US-ROCHE-785016

PATIENT
  Sex: Female
  Weight: 72.6 kg

DRUGS (5)
  1. IBUPROFEN (ADVIL) [Concomitant]
  2. DECADRON [Concomitant]
     Dates: start: 19900822, end: 19901206
  3. DECADRON [Concomitant]
  4. TYLENOL-500 [Concomitant]
  5. ACCUTANE [Suspect]
     Indication: ACNE
     Route: 065
     Dates: start: 19900801, end: 19910101

REACTIONS (8)
  - ANXIETY [None]
  - DRY SKIN [None]
  - PROCTITIS ULCERATIVE [None]
  - IRRITABLE BOWEL SYNDROME [None]
  - COLITIS ULCERATIVE [None]
  - INFLAMMATORY BOWEL DISEASE [None]
  - STRESS [None]
  - CROHN'S DISEASE [None]
